FAERS Safety Report 6426720-5 (Version None)
Quarter: 2009Q4

REPORT INFORMATION
  Report Type: 
  Country: None (occurrence: None)
  Receive Date: 20091104
  Receipt Date: 20091029
  Transmission Date: 20100525
  Serious: Yes (Hospitalization)
  Sender: FDA-Public Use
  Company Number: CA-ELI_LILLY_AND_COMPANY-CA200910004477

PATIENT
  Sex: Female

DRUGS (13)
  1. HUMALOG [Suspect]
     Dosage: UNK, UNK
     Dates: start: 20060101
  2. HUMULIN N [Suspect]
     Dosage: UNK, UNK
     Dates: start: 20060101
  3. MIRTAZAPINE [Concomitant]
     Dosage: 30 MG, UNKNOWN
  4. LIPITOR [Concomitant]
     Dosage: 20 MG, UNKNOWN
  5. ENTROPHEN [Concomitant]
     Dosage: 325 MG, UNKNOWN
  6. ACTONEL [Concomitant]
     Dosage: 35 MG, UNKNOWN
  7. CIPROFLOXACIN [Concomitant]
     Dosage: 500 MG, 2/D
  8. CALCIUM CARBONATE [Concomitant]
     Dosage: 500 MG, UNKNOWN
  9. METRONIDAZOLE [Concomitant]
     Dosage: 500 MG, UNKNOWN
  10. VITAMIN D [Concomitant]
     Dosage: 1000 U, WEEKLY (1/W)
  11. RAMIPRIL [Concomitant]
     Dosage: 5 MG, UNKNOWN
  12. OXYCODONE [Concomitant]
  13. ANTIBIOTICS [Concomitant]

REACTIONS (3)
  - FALL [None]
  - HIP FRACTURE [None]
  - SKIN ULCER [None]
